FAERS Safety Report 7219975-0 (Version None)
Quarter: 2011Q1

REPORT INFORMATION
  Report Type: 
  Country: None (occurrence: None)
  Receive Date: 20110111
  Receipt Date: 20101230
  Transmission Date: 20110831
  Serious: Yes (Hospitalization)
  Sender: FDA-Public Use
  Company Number: US-ELI_LILLY_AND_COMPANY-US201101000368

PATIENT
  Age: 36 Year
  Sex: Male

DRUGS (3)
  1. ZYPREXA [Suspect]
     Indication: SCHIZOPHRENIA
     Dosage: 5 MG, DAILY (1/D)
     Route: 048
  2. ZYPREXA INTRAMUSCULAR [Concomitant]
     Dosage: 300 MG, EVERY 4 WEEKS
     Dates: start: 20101229
  3. ZYPREXA [Suspect]
     Dosage: 20 MG, DAILY (1/D)

REACTIONS (1)
  - HOSPITALISATION [None]
